FAERS Safety Report 18721975 (Version 1)
Quarter: 2021Q1

REPORT INFORMATION
  Report Type: Spontaneous
  Country: US (occurrence: US)
  Receive Date: 20210111
  Receipt Date: 20210111
  Transmission Date: 20210419
  Serious: Yes (Other)
  Sender: FDA-Public Use
  Company Number: US-AUROBINDO-AUR-APL-2020-064410

PATIENT
  Age: 68 Year
  Sex: Male

DRUGS (1)
  1. SEVELAMER CARBONATE. [Suspect]
     Active Substance: SEVELAMER CARBONATE
     Indication: END STAGE RENAL DISEASE
     Dosage: 2400 MILLIGRAM, 3 TIMES A DAY
     Route: 065

REACTIONS (3)
  - Rectal ulcer haemorrhage [Unknown]
  - Large intestinal ulcer [Unknown]
  - Haematochezia [Recovered/Resolved]
